FAERS Safety Report 6643213-0 (Version None)
Quarter: 2010Q1

REPORT INFORMATION
  Report Type: 
  Country: None (occurrence: None)
  Receive Date: 20100319
  Receipt Date: 20100316
  Transmission Date: 20100710
  Serious: Yes (Other)
  Sender: FDA-Public Use
  Company Number: PHHY2009JP53324

PATIENT
  Age: 31 Year
  Sex: Female

DRUGS (4)
  1. CYCLOSPORINE [Suspect]
     Indication: RENAL TRANSPLANT
     Dosage: UNK
     Dates: start: 20060301
  2. SIMULECT [Suspect]
     Indication: RENAL TRANSPLANT
  3. PREDNISOLONE [Concomitant]
     Indication: RENAL TRANSPLANT
  4. MYCOPHENOLATE MOFETIL [Concomitant]
     Indication: RENAL TRANSPLANT

REACTIONS (5)
  - DISEASE RECURRENCE [None]
  - FOCAL SEGMENTAL GLOMERULOSCLEROSIS [None]
  - KIDNEY TRANSPLANT REJECTION [None]
  - MALABSORPTION [None]
  - NEPHROTIC SYNDROME [None]
